FAERS Safety Report 6278549-9 (Version None)
Quarter: 2009Q3

REPORT INFORMATION
  Report Type: 
  Country: None (occurrence: None)
  Receive Date: 20090722
  Receipt Date: 20080814
  Transmission Date: 20100115
  Serious: No
  Sender: FDA-Public Use
  Company Number: US-BAUSCH-2008BL003596

PATIENT
  Age: 48 Year
  Sex: Female

DRUGS (2)
  1. OPCON-A [Suspect]
     Indication: OCULAR HYPERAEMIA
     Route: 047
     Dates: start: 20080301, end: 20080801
  2. OPCON-A [Suspect]
     Indication: EYE PRURITUS
     Route: 047
     Dates: start: 20080301, end: 20080801

REACTIONS (6)
  - ABNORMAL SENSATION IN EYE [None]
  - CONJUNCTIVAL CYST [None]
  - CONJUNCTIVAL HAEMORRHAGE [None]
  - EYE PAIN [None]
  - EYE SWELLING [None]
  - OCULAR ICTERUS [None]
